FAERS Safety Report 7436803 (Version 7)
Quarter: 2014Q2

REPORT INFORMATION
  Report Type: Spontaneous
  Country: US (occurrence: US)
  Receive Date: 20100625
  Receipt Date: 20140401
  Transmission Date: 20141212
  Serious: Yes (Hospitalization)
  Sender: FDA-Public Use
  Company Number: US-ALEXION-A201000698

PATIENT
  Age: 67 Year
  Sex: Female

DRUGS (12)
  1. SOLIRIS 300MG [Suspect]
     Indication: PAROXYSMAL NOCTURNAL HAEMOGLOBINURIA
     Dosage: 600 MG QWK, UNK
     Route: 042
     Dates: start: 20100211, end: 201003
  2. SOLIRIS 300MG [Suspect]
     Dosage: 900 MG Q2WKS, UNK
     Route: 042
     Dates: start: 20100312
  3. ISOSORB                            /00586302/ [Concomitant]
  4. ASPIRIN [Concomitant]
     Dosage: 81 MG, QD
     Route: 048
  5. ZOCOR [Concomitant]
     Dosage: 40 MG, QD
     Route: 048
  6. COUMADIN                           /00014802/ [Concomitant]
     Dosage: UNK
  7. PREDNISONE [Concomitant]
     Dosage: 5 MG, QD
     Route: 048
  8. ELAVIL                             /00002202/ [Concomitant]
     Dosage: 25 MG, BID
     Route: 048
  9. VITAMIN C                          /00008001/ [Concomitant]
  10. MULTIVITAMINS [Concomitant]
     Dosage: UNK
  11. GLUCOSAMINE [Concomitant]
  12. ISOSORBID                          /00586303/ [Concomitant]

REACTIONS (5)
  - Herpes simplex [Recovered/Resolved]
  - Anaemia [Recovered/Resolved]
  - Delirium febrile [Recovered/Resolved]
  - Headache [Recovered/Resolved]
  - Fatigue [Recovered/Resolved]
